FAERS Safety Report 4657949-4 (Version None)
Quarter: 2005Q2

REPORT INFORMATION
  Report Type: 
  Country: None (occurrence: None)
  Receive Date: 20050510
  Receipt Date: 20050426
  Transmission Date: 20051028
  Serious: Yes (Other)
  Sender: FDA-Public Use
  Company Number: 2005AP02524

PATIENT
  Age: 60 Year
  Sex: Male

DRUGS (1)
  1. XYLOCAINE [Suspect]
     Route: 008

REACTIONS (2)
  - BLOOD PRESSURE INCREASED [None]
  - HYPOAESTHESIA [None]
